FAERS Safety Report 8973789 (Version 1)
Quarter: 2012Q4

REPORT INFORMATION
  Report Type: 
  Country: US (occurrence: US)
  Receive Date: 20121218
  Receipt Date: 20121218
  Transmission Date: 20130627
  Serious: No
  Sender: FDA-Public Use
  Company Number: US-BRISTOL-MYERS SQUIBB COMPANY-16413478

PATIENT
  Age: 17 Year
  Sex: Male

DRUGS (3)
  1. ABILIFY [Suspect]
     Dosage: titration to 2.5mg to 5mg
  2. PROZAC [Concomitant]
  3. LEVOXYL [Concomitant]
     Dosage: Levoxyl Thyroid

REACTIONS (2)
  - Aggression [Unknown]
  - Agitation [Unknown]
